FAERS Safety Report 6014987-7 (Version None)
Quarter: 2008Q4

REPORT INFORMATION
  Report Type: 
  Country: None (occurrence: None)
  Receive Date: 20081219
  Receipt Date: 20081212
  Transmission Date: 20090506
  Serious: Yes (Death, Other)
  Sender: FDA-Public Use
  Company Number: PHHO2006JP12655

PATIENT
  Sex: Male
  Weight: 59 kg

DRUGS (14)
  1. NEORAL [Suspect]
     Indication: LIVER TRANSPLANT
     Route: 048
     Dates: start: 20060928
  2. TACROLIMUS COMP-TAC+ [Suspect]
     Indication: LIVER TRANSPLANT
     Dosage: 0.1 - 5.0 MG / DAILY
     Route: 048
     Dates: start: 20060531, end: 20060721
  3. TACROLIMUS COMP-TAC+ [Suspect]
     Dosage: 0.1 - 2.0 MG / DAY
     Route: 048
     Dates: end: 20060824
  4. PREDONINE [Suspect]
     Indication: LIVER TRANSPLANT
     Dosage: 20 MG/DAILY
     Route: 048
     Dates: start: 20060605
  5. PREDONINE [Suspect]
     Dosage: 15 MG/DAILY
     Route: 048
  6. PREDONINE [Suspect]
     Dosage: 10 MG/DAILY
     Route: 048
  7. PREDONINE [Suspect]
     Dosage: 7.5MG/DAILY
     Route: 048
  8. PREDONINE [Suspect]
     Dosage: 10MG/DAILY
     Route: 048
  9. PREDONINE [Suspect]
     Dosage: 5MG/DAILY
     Route: 048
  10. CELLCEPT [Suspect]
     Indication: LIVER TRANSPLANT
     Dosage: 2 G
     Route: 048
     Dates: start: 20060722
  11. URSO 250 [Concomitant]
     Dosage: 600 MG
     Route: 048
     Dates: start: 20060602
  12. VEEN-F [Concomitant]
     Dosage: 2000 ML
     Route: 042
     Dates: start: 20060716
  13. BUMINATE [Concomitant]
     Dosage: 750 ML
     Route: 042
     Dates: start: 20060726
  14. SULPERAZON [Concomitant]

REACTIONS (25)
  - ABDOMINAL PAIN [None]
  - ALANINE AMINOTRANSFERASE INCREASED [None]
  - ANAEMIA [None]
  - ARTHRALGIA [None]
  - ASPARTATE AMINOTRANSFERASE INCREASED [None]
  - BLOOD BILIRUBIN INCREASED [None]
  - CHOLANGITIS [None]
  - CONSTIPATION [None]
  - DEPRESSED LEVEL OF CONSCIOUSNESS [None]
  - HEPATIC ENCEPHALOPATHY [None]
  - HEPATIC FAILURE [None]
  - HEPATITIS CHOLESTATIC [None]
  - HERPES SIMPLEX [None]
  - HYPOALBUMINAEMIA [None]
  - HYPOMAGNESAEMIA [None]
  - HYPONATRAEMIA [None]
  - HYPOTENSION [None]
  - LIVER DISORDER [None]
  - LIVER TRANSPLANT REJECTION [None]
  - MUSCULOSKELETAL PAIN [None]
  - PYREXIA [None]
  - RASH [None]
  - RENAL IMPAIRMENT [None]
  - THROMBOTIC MICROANGIOPATHY [None]
  - VENOOCCLUSIVE DISEASE [None]
